FAERS Safety Report 5372467-6 (Version None)
Quarter: 2007Q2

REPORT INFORMATION
  Report Type: 
  Country: None (occurrence: None)
  Receive Date: 20070620
  Receipt Date: 20070423
  Transmission Date: 20071010
  Serious: No
  Sender: FDA-Public Use
  Company Number: 2007RL000178

PATIENT
  Age: 65 Year
  Sex: Female
  Weight: 68.0396 kg

DRUGS (10)
  1. OMACOR [Suspect]
     Indication: BLOOD CHOLESTEROL INCREASED
     Dosage: 2 GM;QD;PO; 4 GM;QD;PO; 1 GM; QD;PO
     Route: 048
     Dates: start: 20070402, end: 20070408
  2. OMACOR [Suspect]
     Indication: BLOOD CHOLESTEROL INCREASED
     Dosage: 2 GM;QD;PO; 4 GM;QD;PO; 1 GM; QD;PO
     Route: 048
     Dates: start: 20070409, end: 20070422
  3. OMACOR [Suspect]
     Indication: BLOOD CHOLESTEROL INCREASED
     Dosage: 2 GM;QD;PO; 4 GM;QD;PO; 1 GM; QD;PO
     Route: 048
     Dates: start: 20070423
  4. LEVOTHYROXINE SODIUM [Concomitant]
  5. VITAMIN D [Concomitant]
  6. BENEFIBER [Concomitant]
  7. DOCUSATE SODIUM [Concomitant]
  8. COQ10 [Concomitant]
  9. OSCAL 500-D [Concomitant]
  10. ALLEGRA-D 12 HOUR [Concomitant]

REACTIONS (2)
  - INTENTIONAL DRUG MISUSE [None]
  - MEMORY IMPAIRMENT [None]
